FAERS Safety Report 6878919-1 (Version None)
Quarter: 2010Q3

REPORT INFORMATION
  Report Type: 
  Country: None (occurrence: None)
  Receive Date: 20100728
  Receipt Date: 20100716
  Transmission Date: 20110219
  Serious: Yes (Death)
  Sender: FDA-Public Use
  Company Number: GXKR2010JP07532

PATIENT
  Sex: Male

DRUGS (4)
  1. CEFTRIAXONE SODIUM [Suspect]
     Indication: COUGH
     Dosage: 2 G/DAY
     Route: 041
     Dates: start: 20100626, end: 20100626
  2. CEFTRIAXONE SODIUM [Suspect]
     Indication: OROPHARYNGEAL PAIN
  3. SODIUM SALICYLATE ECT [Suspect]
     Indication: BACK PAIN
     Dosage: 0.5 G/DAY
     Route: 041
     Dates: start: 20100626, end: 20100626
  4. SODIUM CHLORIDE [Concomitant]
     Dosage: 100 ML, UNK

REACTIONS (10)
  - ANAPHYLACTIC SHOCK [None]
  - CARDIAC DISORDER [None]
  - CONJUNCTIVAL HAEMORRHAGE [None]
  - CONVULSION [None]
  - COUGH [None]
  - DYSPNOEA [None]
  - LARYNGEAL OEDEMA [None]
  - NAUSEA [None]
  - PHARYNGEAL OEDEMA [None]
  - PULMONARY HAEMORRHAGE [None]
